FAERS Safety Report 11917927 (Version 1)
Quarter: 2016Q1

REPORT INFORMATION
  Report Type: Spontaneous
  Country: BR (occurrence: BR)
  Receive Date: 20160114
  Receipt Date: 20160114
  Transmission Date: 20160526
  Serious: Yes (Other)
  Sender: FDA-Public Use
  Company Number: BR-MALLINCKRODT-T201600054

PATIENT
  Age: 45 Year
  Sex: Female
  Weight: 81 kg

DRUGS (1)
  1. OPTIRAY 320 [Suspect]
     Active Substance: IOVERSOL
     Indication: COMPUTERISED TOMOGRAM
     Dosage: 92 ML, SINGLE
     Route: 042
     Dates: start: 20151209, end: 20151209

REACTIONS (6)
  - Periorbital oedema [Recovered/Resolved]
  - Somnolence [Recovered/Resolved]
  - Confusional state [Recovered/Resolved]
  - Lip oedema [Recovered/Resolved]
  - Presyncope [Recovered/Resolved]
  - Pruritus [Recovered/Resolved]

NARRATIVE: CASE EVENT DATE: 20151209
